FAERS Safety Report 4623010-8 (Version None)
Quarter: 2005Q1

REPORT INFORMATION
  Report Type: 
  Country: None (occurrence: None)
  Receive Date: 20050330
  Receipt Date: 20050323
  Transmission Date: 20050727
  Serious: Yes (Death, Hospitalization)
  Sender: FDA-Public Use
  Company Number: PHBS2005JP04235

PATIENT
  Age: 82 Year
  Sex: Male

DRUGS (1)
  1. CYCLOSPORINE [Suspect]
     Indication: PSORIASIS
     Dates: start: 19870101

REACTIONS (3)
  - ANAPLASTIC LARGE CELL LYMPHOMA T- AND NULL-CELL TYPES [None]
  - METASTASES TO PLEURA [None]
  - RESPIRATORY FAILURE [None]
